FAERS Safety Report 17702798 (Version 7)
Quarter: 2024Q2

REPORT INFORMATION
  Report Type: Other
  Country: JP (occurrence: JP)
  Receive Date: 20200424
  Receipt Date: 20240418
  Transmission Date: 20240716
  Serious: Yes (Hospitalization, Other)
  Sender: FDA-Public Use
  Company Number: JP-CHUGAI-A2020020018ROCHE

PATIENT
  Sex: Female
  Weight: 141 kg

DRUGS (7)
  1. ACTEMRA [Suspect]
     Active Substance: TOCILIZUMAB
     Indication: Cytokine release syndrome
     Dosage: DOSAGE IS UNCERTAIN.
     Route: 065
     Dates: start: 20191211
  2. ACTEMRA [Suspect]
     Active Substance: TOCILIZUMAB
     Dosage: 350 MILLIGRAM
     Route: 065
     Dates: start: 20191214
  3. ACTEMRA [Suspect]
     Active Substance: TOCILIZUMAB
     Dosage: 350 MIL
     Route: 065
     Dates: start: 20191216
  4. KYMRIAH [Suspect]
     Active Substance: TISAGENLECLEUCEL
     Indication: Acute lymphocytic leukaemia recurrent
     Dosage: FULL DOSE ADMINISTRATION, TOTAL NUMBER OF CELLS ADMINISTERED: 0.49X10^9, MOST RECENT DOSE 09/DEC/201
     Route: 041
     Dates: start: 20191209
  5. CYTARABINE [Concomitant]
     Active Substance: CYTARABINE
  6. FLUDARABINE PHOSPHATE [Concomitant]
     Active Substance: FLUDARABINE PHOSPHATE
  7. CYCLOPHOSPHAMIDE [Concomitant]
     Active Substance: CYCLOPHOSPHAMIDE

REACTIONS (9)
  - Leukoencephalopathy [Recovered/Resolved with Sequelae]
  - Erythropenia [Recovering/Resolving]
  - Bedridden [Not Recovered/Not Resolved]
  - Immune effector cell-associated neurotoxicity syndrome [Not Recovered/Not Resolved]
  - Cytopenia [Unknown]
  - Hypogammaglobulinaemia [Not Recovered/Not Resolved]
  - Lymphocyte count decreased [Unknown]
  - Thrombocytopenia [Recovering/Resolving]
  - Leukopenia [Recovering/Resolving]

NARRATIVE: CASE EVENT DATE: 20200101
